FAERS Safety Report 24112279 (Version 1)
Quarter: 2024Q3

REPORT INFORMATION
  Report Type: Report from Study
  Country: US (occurrence: None)
  Receive Date: 20240719
  Receipt Date: 20240719
  Transmission Date: 20241017
  Serious: Yes (Hospitalization, Other)
  Sender: ASTRAZENECA
  Company Number: 2023A091065

PATIENT
  Sex: Male

DRUGS (1)
  1. TAGRISSO [Suspect]
     Active Substance: OSIMERTINIB
     Route: 048

REACTIONS (5)
  - Pericardial effusion [Unknown]
  - Neoplasm malignant [Unknown]
  - Dyspnoea [Unknown]
  - Pulmonary oedema [Unknown]
  - Product dose omission issue [Unknown]
